FAERS Safety Report 5736026-5 (Version None)
Quarter: 2008Q2

REPORT INFORMATION
  Report Type: 
  Country: None (occurrence: None)
  Receive Date: 20080513
  Receipt Date: 20080505
  Transmission Date: 20081010
  Serious: Yes (Hospitalization)
  Sender: FDA-Public Use
  Company Number: IN-AVENTIS-200814129GDDC

PATIENT
  Sex: Male
  Weight: 61 kg

DRUGS (5)
  1. LANTUS [Suspect]
     Route: 058
     Dates: start: 20070325
  2. AMLODIPINE [Concomitant]
     Indication: HYPERTENSION
     Route: 048
     Dates: start: 19980101
  3. LOSARTAN POTASSIUM [Concomitant]
     Indication: HYPERTENSION
     Route: 048
     Dates: start: 20070125
  4. GLICLAZIDE [Concomitant]
     Route: 048
     Dates: start: 20030101
  5. METFORMIN HCL [Concomitant]
     Route: 048
     Dates: start: 20030101

REACTIONS (2)
  - DIZZINESS [None]
  - HYPERHIDROSIS [None]
